FAERS Safety Report 10523850 (Version 1)
Quarter: 2014Q4

REPORT INFORMATION
  Report Type: Spontaneous
  Country: US (occurrence: None)
  Receive Date: 20141015
  Receipt Date: 20141015
  Transmission Date: 20150528
  Serious: Yes (Other)
  Sender: FDA-Public Use
  Company Number: None

PATIENT
  Age: 50 Year
  Sex: Female
  Weight: 74.84 kg

DRUGS (1)
  1. COPAXONE [Suspect]
     Active Substance: GLATIRAMER ACETATE
     Indication: MULTIPLE SCLEROSIS
     Dosage: 40 MG IN MANNITOL  QMWF
     Route: 058
     Dates: start: 20140901, end: 20141013

REACTIONS (5)
  - Stevens-Johnson syndrome [None]
  - Rash morbilliform [None]
  - Drug eruption [None]
  - Pemphigoid [None]
  - Blister [None]

NARRATIVE: CASE EVENT DATE: 20140929
